FAERS Safety Report 4324859-1 (Version None)
Quarter: 2004Q1

REPORT INFORMATION
  Report Type: 
  Country: None (occurrence: None)
  Receive Date: 20040323
  Receipt Date: 20031202
  Transmission Date: 20041129
  Serious: No
  Sender: FDA-Public Use
  Company Number: M03-341-046

PATIENT
  Age: 81 Year
  Sex: Female

DRUGS (2)
  1. VELCADE [Suspect]
     Indication: MULTIPLE MYELOMA
     Dosage: 2.2 MG: INTRAVENOUS BOLUS
     Route: 040
     Dates: end: 20030729
  2. AUGMENTIN [Concomitant]

REACTIONS (1)
  - RASH GENERALISED [None]
